FAERS Safety Report 21174740 (Version 1)
Quarter: 2022Q3

REPORT INFORMATION
  Report Type: Spontaneous
  Country: MX (occurrence: MX)
  Receive Date: 20220805
  Receipt Date: 20220805
  Transmission Date: 20221026
  Serious: Yes (Death)
  Sender: FDA-Public Use
  Company Number: MX-UCBSA-2022045221

PATIENT
  Age: 89 Year
  Sex: Female

DRUGS (1)
  1. VIMPAT [Suspect]
     Active Substance: LACOSAMIDE
     Indication: Epilepsy
     Dosage: 0.5 TABLET EVERY DAY IN THE MORNING AND 1 TABLET AT NIGHT
     Dates: start: 20210708, end: 202207

REACTIONS (2)
  - Epilepsy [Fatal]
  - Off label use [Unknown]

NARRATIVE: CASE EVENT DATE: 20210708
